FAERS Safety Report 7816871-2 (Version None)
Quarter: 2011Q4

REPORT INFORMATION
  Report Type: 
  Country: None (occurrence: None)
  Receive Date: 20111013
  Receipt Date: 20111005
  Transmission Date: 20120403
  Serious: Yes (Death)
  Sender: FDA-Public Use
  Company Number: B0749430A

PATIENT

DRUGS (1)
  1. MELPHALAN HYDROCHLORIDE [Suspect]
     Indication: NEUROENDOCRINE TUMOUR
     Dosage: CYCLIC

REACTIONS (2)
  - CHOLANGITIS [None]
  - GASTRIC ULCER [None]
